FAERS Safety Report 4895298-X (Version None)
Quarter: 2005Q4

REPORT INFORMATION
  Report Type: 
  Country: None (occurrence: None)
  Receive Date: 20051221
  Receipt Date: 20051025
  Transmission Date: 20060501
  Serious: No
  Sender: FDA-Public Use
  Company Number: US-YAMANOUCHI-YPA20050558

PATIENT
  Age: 63 Year
  Sex: Female

DRUGS (7)
  1. VESICARE [Suspect]
     Indication: HYPERTONIC BLADDER
     Dosage: 5 MG QD PO
     Route: 048
     Dates: start: 20050301, end: 20050101
  2. VESICARE [Suspect]
     Indication: HYPERTONIC BLADDER
     Dosage: 10 MG QD PO
     Route: 048
     Dates: start: 20050101, end: 20050831
  3. VESICARE [Suspect]
     Indication: HYPERTONIC BLADDER
     Dosage: 5 MG QD PO
     Route: 048
     Dates: start: 20050901, end: 20051102
  4. VESICARE [Suspect]
     Indication: HYPERTONIC BLADDER
     Dosage: 10 MG QD PO
     Route: 048
     Dates: start: 20051103
  5. ALTACE [Concomitant]
  6. SPRIVA [Concomitant]
  7. HYDROCODONE BITARTRATE [Concomitant]

REACTIONS (1)
  - POLLAKIURIA [None]
